FAERS Safety Report 5072283-9 (Version None)
Quarter: 2006Q3

REPORT INFORMATION
  Report Type: 
  Country: None (occurrence: None)
  Receive Date: 20060801
  Receipt Date: 20060720
  Transmission Date: 20061208
  Serious: Yes (Congenital Anomaly, Other)
  Sender: FDA-Public Use
  Company Number: 2006083103

PATIENT
  Sex: Female
  Weight: 94.3482 kg

DRUGS (2)
  1. DETROL [Suspect]
     Indication: SALIVARY HYPERSECRETION
     Dosage: 2 MG (2 MG, 1 IN 1 D)
  2. DETROL LA [Suspect]
     Indication: SALIVARY HYPERSECRETION
     Dates: start: 20060201

REACTIONS (3)
  - CARDIAC DISORDER [None]
  - DRUG INEFFECTIVE [None]
  - INTERVERTEBRAL DISC COMPRESSION [None]
